FAERS Safety Report 9475427 (Version 1)
Quarter: 2013Q3

REPORT INFORMATION
  Report Type: Spontaneous
  Country: US (occurrence: US)
  Receive Date: 20130826
  Receipt Date: 20130826
  Transmission Date: 20140515
  Serious: No
  Sender: FDA-Public Use
  Company Number: US-BIOGENIDEC-2013BI078601

PATIENT
  Sex: Female

DRUGS (7)
  1. TYSABRI [Suspect]
     Indication: MULTIPLE SCLEROSIS
     Route: 042
     Dates: start: 20120213
  2. CLONAZEPAM [Concomitant]
     Indication: INITIAL INSOMNIA
  3. CLONAZEPAM [Concomitant]
     Indication: MIDDLE INSOMNIA
  4. METFORMIN [Concomitant]
     Indication: TYPE 2 DIABETES MELLITUS
     Dates: start: 2007
  5. LYRICA [Concomitant]
     Indication: FIBROMYALGIA
  6. LYRICA [Concomitant]
     Indication: DEPRESSION
  7. ZOLOFT [Concomitant]
     Indication: DEPRESSION

REACTIONS (23)
  - Muscular weakness [Not Recovered/Not Resolved]
  - Anxiety [Not Recovered/Not Resolved]
  - Fall [Recovered/Resolved]
  - Pain [Not Recovered/Not Resolved]
  - Depression [Not Recovered/Not Resolved]
  - Initial insomnia [Recovered/Resolved]
  - Middle insomnia [Recovered/Resolved]
  - Heart rate decreased [Recovered/Resolved]
  - Decreased immune responsiveness [Not Recovered/Not Resolved]
  - Infection in an immunocompromised host [Recovered/Resolved]
  - Sensation of heaviness [Recovered/Resolved]
  - Hypoaesthesia [Recovered/Resolved]
  - Hyperaesthesia [Recovered/Resolved]
  - Judgement impaired [Recovered/Resolved]
  - Paraesthesia [Recovered/Resolved]
  - Foreign body sensation in eyes [Recovered/Resolved]
  - Temperature intolerance [Not Recovered/Not Resolved]
  - Migraine [Recovered/Resolved]
  - Gait disturbance [Not Recovered/Not Resolved]
  - Hyperhidrosis [Recovered/Resolved]
  - Fatigue [Not Recovered/Not Resolved]
  - Pyrexia [Recovered/Resolved]
  - Multiple sclerosis relapse [Recovered/Resolved]
